FAERS Safety Report 25555353 (Version 1)
Quarter: 2025Q3

REPORT INFORMATION
  Report Type: Spontaneous
  Country: US (occurrence: US)
  Receive Date: 20250715
  Receipt Date: 20250715
  Transmission Date: 20251021
  Serious: Yes (Other)
  Sender: NOVO NORDISK
  Company Number: US-NOVOPROD-1239103

PATIENT
  Sex: Female

DRUGS (1)
  1. OZEMPIC [Suspect]
     Active Substance: SEMAGLUTIDE
     Indication: Type 2 diabetes mellitus
     Route: 058
     Dates: start: 20230712, end: 20231115

REACTIONS (4)
  - Cholelithiasis [Recovered/Resolved]
  - Splenomegaly [Unknown]
  - Hepatic steatosis [Unknown]
  - Gastritis [Recovered/Resolved]
